FAERS Safety Report 7224301-7 (Version None)
Quarter: 2011Q1

REPORT INFORMATION
  Report Type: 
  Country: None (occurrence: None)
  Receive Date: 20110104
  Receipt Date: 20101222
  Transmission Date: 20110831
  Serious: Yes (Other)
  Sender: FDA-Public Use
  Company Number: 022013

PATIENT
  Sex: Female

DRUGS (6)
  1. CALCITRIOL [Concomitant]
  2. ORAL CONTRACEPTIVE NOS [Concomitant]
  3. CIMZIA [Suspect]
     Indication: CROHN'S DISEASE
     Dosage: (400 MG 1X/MONTH SUBCUTANEOUS)
     Route: 058
     Dates: start: 20100601, end: 20101001
  4. PRILOSEC [Concomitant]
  5. MERCAPTOPURINE [Concomitant]
  6. ASACOL [Concomitant]

REACTIONS (4)
  - HAEMOGLOBIN DECREASED [None]
  - BLOOD POTASSIUM DECREASED [None]
  - BLOOD SODIUM DECREASED [None]
  - TONSIL CANCER [None]
